FAERS Safety Report 6170282-7 (Version None)
Quarter: 2009Q2

REPORT INFORMATION
  Report Type: 
  Country: None (occurrence: None)
  Receive Date: 20090428
  Receipt Date: 20090416
  Transmission Date: 20091009
  Serious: Yes (Hospitalization, Other)
  Sender: FDA-Public Use
  Company Number: FR-PFIZER INC-2009170025

PATIENT

DRUGS (10)
  1. ZYVOXID [Suspect]
     Indication: LUNG DISORDER
     Dates: start: 20090122, end: 20090206
  2. DROTRECOGIN ALFA [Concomitant]
  3. PROPOFOL [Concomitant]
  4. SUFENTANIL CITRATE [Concomitant]
  5. DRUG, UNSPECIFIED [Concomitant]
  6. HYDROCORTISONE HEMISUCCINATE [Concomitant]
  7. HEPARIN SODIUM [Concomitant]
  8. LEVOFLOXACIN [Concomitant]
  9. ESOMEPRAZOLE MAGNESIUM [Concomitant]
  10. ACETYLSALICYLATE LYSINE [Concomitant]

REACTIONS (3)
  - BLINDNESS [None]
  - QUADRIPARESIS [None]
  - TOXIC ENCEPHALOPATHY [None]
